FAERS Safety Report 8506402-6 (Version None)
Quarter: 2012Q3

REPORT INFORMATION
  Report Type: 
  Country: None (occurrence: None)
  Receive Date: 20120712
  Receipt Date: 20120419
  Transmission Date: 20120928
  Serious: Yes (Life-Threatening, Other)
  Sender: FDA-Public Use
  Company Number: US-ASTRAZENECA-2012SE47031

PATIENT
  Age: 29 Year
  Sex: Female

DRUGS (5)
  1. BUPROPION HCL [Suspect]
  2. QUETIAPINE [Suspect]
     Route: 048
  3. DESVENLAFAXINE [Suspect]
  4. IBUPROFEN [Suspect]
  5. ESCITALOPRAM [Suspect]

REACTIONS (6)
  - SINUS TACHYCARDIA [None]
  - MULTIPLE DRUG OVERDOSE [None]
  - HYPOTENSION [None]
  - HAEMODYNAMIC INSTABILITY [None]
  - CARDIAC ARREST [None]
  - BRAIN INJURY [None]
